FAERS Safety Report 10133613 (Version 3)
Quarter: 2014Q2

REPORT INFORMATION
  Report Type: Spontaneous
  Country: JP (occurrence: JP)
  Receive Date: 20140428
  Receipt Date: 20140528
  Transmission Date: 20141212
  Serious: Yes (Hospitalization, Disabling)
  Sender: FDA-Public Use
  Company Number: JP-GLAXOSMITHKLINE-B0988448A

PATIENT
  Age: 95 Year
  Sex: Female

DRUGS (7)
  1. RELENZA [Suspect]
     Indication: INFLUENZA
     Dosage: 10MG TWICE PER DAY
     Route: 055
     Dates: start: 20140306, end: 20140309
  2. CALBLOCK [Concomitant]
     Route: 048
  3. OLMETEC [Concomitant]
     Route: 048
  4. SG [Concomitant]
     Route: 048
  5. CLARITH [Concomitant]
     Route: 048
  6. SENNOSIDE [Concomitant]
     Route: 048
  7. PARACETAMOL [Concomitant]
     Route: 048

REACTIONS (2)
  - Femoral neck fracture [Not Recovered/Not Resolved]
  - Abnormal behaviour [Not Recovered/Not Resolved]
